FAERS Safety Report 8459045-7 (Version None)
Quarter: 2012Q2

REPORT INFORMATION
  Report Type: 
  Country: None (occurrence: None)
  Receive Date: 20120622
  Receipt Date: 20120620
  Transmission Date: 20120825
  Serious: Yes (Disabling)
  Sender: FDA-Public Use
  Company Number: DE-ROCHE-1077016

PATIENT
  Sex: Male
  Weight: 94 kg

DRUGS (4)
  1. LEUCOVORIN CALCIUM [Concomitant]
     Dates: start: 20110401, end: 20111001
  2. FLUOROURACIL [Concomitant]
     Dates: start: 20110401, end: 20111001
  3. AVASTIN [Suspect]
     Indication: PRODUCT USED FOR UNKNOWN INDICATION
     Route: 042
     Dates: start: 20110830
  4. OXALIPLATIN [Concomitant]
     Dates: start: 20110401, end: 20111001

REACTIONS (1)
  - ERECTILE DYSFUNCTION [None]
